FAERS Safety Report 18002051 (Version 1)
Quarter: 2020Q3

REPORT INFORMATION
  Report Type: Spontaneous
  Country: None (occurrence: US)
  Receive Date: 20200709
  Receipt Date: 20200709
  Transmission Date: 20201103
  Serious: Yes (Other)
  Sender: FDA-Public Use
  Company Number: US-IMPRIMIS NJOF-2087184

PATIENT

DRUGS (1)
  1. MKO MELT DOSE PACK [Suspect]
     Active Substance: KETAMINE HYDROCHLORIDE\MIDAZOLAM\ONDANSETRON HYDROCHLORIDE ANHYDROUS
     Route: 048

REACTIONS (1)
  - Oxygen saturation decreased [None]
